FAERS Safety Report 5595388-2 (Version None)
Quarter: 2008Q1

REPORT INFORMATION
  Report Type: 
  Country: None (occurrence: None)
  Receive Date: 20080118
  Receipt Date: 20080109
  Transmission Date: 20080703
  Serious: Yes (Life-Threatening, Other)
  Sender: FDA-Public Use
  Company Number: US-BAYER-200810806NA

PATIENT
  Age: 78 Year
  Sex: Female
  Weight: 73 kg

DRUGS (9)
  1. ULTRAVIST 370 [Suspect]
     Indication: ARTERIOGRAM
     Dosage: UNIT DOSE: 135 ML
     Route: 013
     Dates: start: 20080108, end: 20080108
  2. TOPROL-XL [Concomitant]
  3. VITAMIN CAP [Concomitant]
  4. LOVASTATIN [Concomitant]
  5. HYZAR [Concomitant]
  6. COUMADIN [Concomitant]
  7. AMIODARONE [Concomitant]
  8. BENADRYL [Concomitant]
     Indication: PREMEDICATION
     Dosage: UNIT DOSE: 50 MG
     Route: 042
     Dates: start: 20080108, end: 20080108
  9. VERSED [Concomitant]
     Indication: PREMEDICATION
     Dosage: UNIT DOSE: 2 MG
     Route: 042
     Dates: start: 20080108, end: 20080108

REACTIONS (4)
  - DEPRESSED LEVEL OF CONSCIOUSNESS [None]
  - PRURITUS [None]
  - RASH ERYTHEMATOUS [None]
  - RESPIRATORY ARREST [None]
